FAERS Safety Report 6172777-9 (Version None)
Quarter: 2009Q2

REPORT INFORMATION
  Report Type: 
  Country: None (occurrence: None)
  Receive Date: 20090430
  Receipt Date: 20090415
  Transmission Date: 20091009
  Serious: Yes (Hospitalization, Other)
  Sender: FDA-Public Use
  Company Number: US-BRISTOL-MYERS SQUIBB COMPANY-14557888

PATIENT
  Age: 56 Year
  Sex: Female
  Weight: 71 kg

DRUGS (17)
  1. CETUXIMAB [Suspect]
     Indication: TRANSITIONAL CELL CARCINOMA
     Dosage: D1 + D15 OF 28D CYCLE, STARTED ON 04-FEB-2009
     Route: 042
     Dates: start: 20090304, end: 20090304
  2. CISPLATIN [Suspect]
     Indication: TRANSITIONAL CELL CARCINOMA
     Dosage: FREQ-D1 OF 2 DAY CYCLE
     Route: 042
  3. GEMCITABINE HCL [Suspect]
     Indication: BLADDER TRANSITIONAL CELL CARCINOMA
     Dosage: D1,15 + 21 OF 28D CYCLE , STARTED ON 04-FEB-2009
     Dates: start: 20090311, end: 20090311
  4. OXYCODONE HCL [Concomitant]
     Indication: PAIN
     Dosage: 1 DOSAGE FORM = 5-10MG. FREQ-Q2-4H(USES 5MG QHS)
     Route: 048
  5. PRILOSEC [Concomitant]
     Route: 048
  6. CALCIUM + VITAMIN D [Concomitant]
     Dosage: 1 DOSAGE FORM = 500/200
     Route: 048
  7. COLACE [Concomitant]
     Route: 048
  8. LORAZEPAM [Concomitant]
     Dosage: 1DF = 0.5MG TABS, 1 TO 2 TABS, Q4-6H
     Route: 048
  9. MINOCYCLINE HCL [Concomitant]
     Route: 048
  10. REGLAN [Concomitant]
     Route: 048
  11. MIRALAX [Concomitant]
     Route: 048
  12. COMPAZINE [Concomitant]
     Dosage: Q6-8 HOUR
     Route: 048
  13. DEXAMETHASONE 4MG TAB [Concomitant]
     Indication: NAUSEA
     Dosage: BID
     Route: 048
  14. EMEND [Concomitant]
     Dosage: EMEND BIFOLD PACK.DAY 2 + 3 OF CHEMO
     Route: 048
  15. EMLA [Concomitant]
     Dosage: EMLA CREAM APPLY 30 MIN PRIOR TO ACESS
  16. FENTANYL TRANSDERMAL SYSTEM [Concomitant]
     Route: 062
  17. ONDANSETRON HCL [Concomitant]
     Route: 048

REACTIONS (4)
  - DEEP VEIN THROMBOSIS [None]
  - MALIGNANT NEOPLASM PROGRESSION [None]
  - NEUTROPENIA [None]
  - PULMONARY EMBOLISM [None]
